FAERS Safety Report 7329171-4 (Version None)
Quarter: 2011Q1

REPORT INFORMATION
  Report Type: 
  Country: None (occurrence: None)
  Receive Date: 20110303
  Receipt Date: 20110224
  Transmission Date: 20110831
  Serious: Yes (Hospitalization)
  Sender: FDA-Public Use
  Company Number: A0875873A

PATIENT
  Age: 60 Year
  Sex: Female

DRUGS (8)
  1. GLUCOPHAGE [Concomitant]
  2. AVANDAMET [Suspect]
     Route: 048
     Dates: start: 20060101, end: 20080101
  3. COREG [Concomitant]
  4. ATIVAN [Concomitant]
  5. AVANDIA [Suspect]
     Indication: DIABETES MELLITUS
     Route: 048
     Dates: start: 20001009, end: 20080222
  6. ALTACE [Concomitant]
  7. CRESTOR [Concomitant]
  8. ZANTAC [Concomitant]

REACTIONS (2)
  - ACUTE MYOCARDIAL INFARCTION [None]
  - CORONARY ARTERIAL STENT INSERTION [None]
